FAERS Safety Report 8312015 (Version 2)
Quarter: 2014Q1

REPORT INFORMATION
  Report Type: Report from Study
  Country: FR (occurrence: FR)
  Receive Date: 20111227
  Receipt Date: 20140131
  Transmission Date: 20141002
  Serious: Yes (Death, Hospitalization)
  Sender: FDA-Public Use
  Company Number: FR-ROCHE-803910

PATIENT
  Age: 84 Year
  Sex: Female
  Weight: 53 kg

DRUGS (2)
  1. RITUXIMAB [Suspect]
     Indication: CHRONIC LYMPHOCYTIC LEUKAEMIA
     Dosage: LAST DOSE PRIOR TO SAE 15/JUL/2011
     Route: 042
     Dates: start: 20110616, end: 20110916
  2. BENDAMUSTINE [Suspect]
     Indication: CHRONIC LYMPHOCYTIC LEUKAEMIA
     Dosage: DATE OF MOST RECENT DOSE PRIOR TO SAE: 16/JUL/2011
     Route: 042
     Dates: start: 20110616, end: 20110916

REACTIONS (2)
  - Thrombocytopenia [Fatal]
  - Pneumonia [Recovered/Resolved]
